FAERS Safety Report 6945287-6 (Version None)
Quarter: 2010Q3

REPORT INFORMATION
  Report Type: 
  Country: None (occurrence: None)
  Receive Date: 20100827
  Receipt Date: 20100820
  Transmission Date: 20110219
  Serious: Yes (Other)
  Sender: FDA-Public Use
  Company Number: US-BAYER-201019332BCC

PATIENT
  Age: 66 Year
  Sex: Female
  Weight: 91 kg

DRUGS (3)
  1. ALEVE (CAPLET) [Suspect]
     Indication: ANALGESIC THERAPY
     Dosage: UNIT DOSE: 220 MG
     Route: 048
     Dates: start: 20060101
  2. ALEVE [Suspect]
     Indication: ANALGESIC THERAPY
     Dosage: UNIT DOSE: 220 MG
     Route: 048
     Dates: start: 20060101
  3. IMODIUM [Concomitant]
     Route: 065

REACTIONS (5)
  - CONFUSIONAL STATE [None]
  - DIZZINESS [None]
  - DYSKINESIA [None]
  - FEELING OF BODY TEMPERATURE CHANGE [None]
  - TREMOR [None]
